FAERS Safety Report 14462201 (Version 1)
Quarter: 2018Q1

REPORT INFORMATION
  Report Type: Spontaneous
  Country: SE (occurrence: SE)
  Receive Date: 20180130
  Receipt Date: 20180130
  Transmission Date: 20180509
  Serious: Yes (Life-Threatening)
  Sender: FDA-Public Use
  Company Number: SE-ABBVIE-18P-150-2237772-00

PATIENT
  Sex: Female

DRUGS (4)
  1. ISAVUCONAZONIUM SULFATE (CRESEMBA) [Concomitant]
     Indication: PRODUCT USED FOR UNKNOWN INDICATION
  2. VENCLEXTA [Suspect]
     Active Substance: VENETOCLAX
     Indication: ACUTE MYELOID LEUKAEMIA
     Route: 048
     Dates: start: 2017
  3. ISAVUCONAZONIUM SULFATE (CRESEMBA) [Concomitant]
     Indication: PRODUCT USED FOR UNKNOWN INDICATION
  4. AZACYTIDINE [Concomitant]
     Active Substance: AZACITIDINE
     Indication: PRODUCT USED FOR UNKNOWN INDICATION

REACTIONS (3)
  - Off label use [Unknown]
  - Blood count abnormal [Not Recovered/Not Resolved]
  - Disease progression [Not Recovered/Not Resolved]
